FAERS Safety Report 5989691-1 (Version None)
Quarter: 2008Q4

REPORT INFORMATION
  Report Type: 
  Country: None (occurrence: None)
  Receive Date: 20081210
  Receipt Date: 20081205
  Transmission Date: 20090506
  Serious: Yes (Hospitalization)
  Sender: FDA-Public Use
  Company Number: JP-ROXANE LABORATORIES, INC.-2008-RO-00366RO

PATIENT
  Age: 70 Year
  Sex: Female
  Weight: 37 kg

DRUGS (3)
  1. CYCLOPHOSPHAMIDE [Suspect]
     Indication: GLOMERULONEPHRITIS
     Dosage: 50MG
     Route: 048
     Dates: start: 20051206
  2. PREDNISOLONE [Suspect]
     Indication: GLOMERULONEPHRITIS
     Dosage: 30MG
     Dates: start: 20051107
  3. SODIUM CHLORIDE 0.9% [Concomitant]

REACTIONS (1)
  - WATER INTOXICATION [None]
